FAERS Safety Report 16092946 (Version 4)
Quarter: 2020Q1

REPORT INFORMATION
  Report Type: Spontaneous
  Country: US (occurrence: US)
  Receive Date: 20190320
  Receipt Date: 20200115
  Transmission Date: 20200409
  Serious: Yes (Hospitalization)
  Sender: FDA-Public Use
  Company Number: US-B.I. PHARMACEUTICALS,INC./RIDGEFIELD-2019-BI-012423

PATIENT
  Age: 70 Year
  Sex: Male
  Weight: 104.33 kg

DRUGS (31)
  1. INSULIN GLARGINE [Concomitant]
     Active Substance: INSULIN GLARGINE
     Indication: DRUG THERAPY
     Dosage: FORM STRENGTH: 100 UNT/ML 3ML SOLOSTAR; ADMINISTER AT THE SAME TIME EACH DAY AS DIRECTED.
     Route: 058
     Dates: start: 20070101
  2. METOLAZONE. [Concomitant]
     Active Substance: METOLAZONE
     Indication: FLUID RETENTION
     Route: 048
  3. METOLAZONE. [Concomitant]
     Active Substance: METOLAZONE
     Indication: DRUG THERAPY
  4. SLO-NIACIN [Concomitant]
     Active Substance: NIACIN
     Indication: DRUG THERAPY
     Dosage: TAKE AFTER A LOW FAT SNACK
     Route: 048
  5. PRADAXA [Suspect]
     Active Substance: DABIGATRAN ETEXILATE MESYLATE
     Indication: ANTICOAGULANT THERAPY
  6. ALBUTEROL. [Concomitant]
     Active Substance: ALBUTEROL
     Indication: DRUG THERAPY
     Dosage: FORM STRENGTH: 90MCG (CFC-F) 200D
     Route: 055
     Dates: start: 20070101
  7. CADEXOMER IODINE [Concomitant]
     Active Substance: CADEXOMER IODINE
     Indication: SKIN ULCER
     Dosage: FORM STRENGTH: 0.9% TOP GEL; APPLY LIGHTLY TO AFFECTED AREAS EVERY OTHER DAY
     Route: 061
  8. INSULIN ASPART [Concomitant]
     Active Substance: INSULIN ASPART
     Indication: DRUG THERAPY
     Dosage: FORM STRENGTH: 100UN/ML NOVO FLEXPEN 3ML, ADMINISTER 10 MINUTES BEFORE FOOD AS DIRECTED.
     Route: 058
     Dates: start: 20070101
  9. PRADAXA [Suspect]
     Active Substance: DABIGATRAN ETEXILATE MESYLATE
     Indication: ATRIAL FIBRILLATION
     Route: 048
     Dates: start: 20150831, end: 20160316
  10. PACERONE [Concomitant]
     Active Substance: AMIODARONE HYDROCHLORIDE
     Indication: DRUG THERAPY
     Route: 048
  11. BUDESONIDE W/FORMOTEROL [Concomitant]
     Active Substance: BUDESONIDE\FORMOTEROL
     Indication: DRUG THERAPY
     Dosage: FORM STRENGTH: 160/4.5MCG 120D INH
     Route: 055
  12. POVIDONE-IODINE. [Concomitant]
     Active Substance: POVIDONE-IODINE
     Indication: LIMB INJURY
     Dosage: FORM STRENGTH: 10% TOP SOLN; APPLY LIGHTLY TO AFFECTED AREA(S) ONCE A DAY, MOISTEN GAUZE
     Route: 061
  13. FUROSEMIDE. [Concomitant]
     Active Substance: FUROSEMIDE
     Indication: PRODUCT USED FOR UNKNOWN INDICATION
     Route: 065
     Dates: start: 20070101
  14. PROMETHAZINE HCL [Concomitant]
     Active Substance: PROMETHAZINE HYDROCHLORIDE
     Indication: NAUSEA
     Route: 048
  15. ALLOPURINOL. [Concomitant]
     Active Substance: ALLOPURINOL
     Indication: GOUT
     Route: 048
  16. BENZONATATE. [Concomitant]
     Active Substance: BENZONATATE
     Indication: COUGH
     Route: 048
  17. HYDROCORTISONE ACETATE. [Concomitant]
     Active Substance: HYDROCORTISONE ACETATE
     Indication: HAEMORRHOIDS
     Dosage: RTL SUPP UNWRAP AND INSERT
     Route: 054
  18. SEVELAMER CARBONATE. [Concomitant]
     Active Substance: SEVELAMER CARBONATE
     Indication: HYPERPHOSPHATAEMIA
     Dosage: TAKE WITH FOOD
     Route: 048
  19. ALBUTEROL W/IPRATROPIUM [Concomitant]
     Active Substance: ALBUTEROL\IPRATROPIUM
     Indication: DRUG THERAPY
     Dosage: FORM STRENGTH: 0.5MG/3ML INHL 3 ML
     Route: 055
  20. CARVEDILOL. [Concomitant]
     Active Substance: CARVEDILOL
     Indication: DRUG THERAPY
     Route: 048
     Dates: start: 20070101
  21. VITAMIN D3 [Concomitant]
     Active Substance: CHOLECALCIFEROL
     Indication: VITAMIN D DEFICIENCY
     Route: 048
  22. LISINOPRIL. [Concomitant]
     Active Substance: LISINOPRIL
     Indication: PRODUCT USED FOR UNKNOWN INDICATION
     Route: 065
     Dates: start: 20070101
  23. COLCHICINE. [Concomitant]
     Active Substance: COLCHICINE
     Indication: GOUT
     Route: 048
  24. CYANOCOBALAMIN. [Concomitant]
     Active Substance: CYANOCOBALAMIN
     Indication: VITAMIN SUPPLEMENTATION
     Route: 048
  25. OMEPRAZOLE. [Concomitant]
     Active Substance: OMEPRAZOLE
     Indication: DRUG THERAPY
     Dosage: TAKE 30 MINUTES PRIOR TO FOOD.
     Route: 048
     Dates: start: 20070101
  26. PROMETHAZINE HCL [Concomitant]
     Active Substance: PROMETHAZINE HYDROCHLORIDE
     Indication: VOMITING
  27. THEOPHYLLINE [Concomitant]
     Active Substance: THEOPHYLLINE ANHYDROUS
     Indication: DRUG THERAPY
     Dosage: 400MG 24HR SA TAB
     Route: 048
  28. VITAMIN D2 [Concomitant]
     Active Substance: ERGOCALCIFEROL
     Indication: PRODUCT USED FOR UNKNOWN INDICATION
     Route: 065
  29. ASPIRIN EC [Concomitant]
     Active Substance: ASPIRIN
     Indication: DRUG THERAPY
     Route: 048
  30. CARBOXYMETHYLCELLULOSE SODIUM. [Concomitant]
     Active Substance: CARBOXYMETHYLCELLULOSE SODIUM
     Indication: EYE LUBRICATION THERAPY
     Dosage: FORM STRENGTH: 0.5% OPH SOLN INSTILL, 1 DROP IN BOTH EYES FOUR TIMES A DAY AS NEEDED
     Route: 031
  31. NITROSTAT [Concomitant]
     Active Substance: NITROGLYCERIN
     Indication: CHEST PAIN
     Dosage: MAXIMUM 3 TABS
     Route: 060

REACTIONS (1)
  - Rectal haemorrhage [Unknown]

NARRATIVE: CASE EVENT DATE: 20160317
